FAERS Safety Report 4550515-0 (Version None)
Quarter: 2005Q1

REPORT INFORMATION
  Report Type: 
  Country: None (occurrence: None)
  Receive Date: 20050112
  Receipt Date: 20041229
  Transmission Date: 20050727
  Serious: Yes (Hospitalization)
  Sender: FDA-Public Use
  Company Number: JP-JNJFOC-20040203201

PATIENT
  Sex: Female
  Weight: 49 kg

DRUGS (23)
  1. REMICADE [Suspect]
     Route: 041
     Dates: start: 20031125
  2. REMICADE [Suspect]
     Route: 041
     Dates: start: 20031125
  3. REMICADE [Suspect]
     Indication: RHEUMATOID ARTHRITIS
     Route: 041
     Dates: start: 20031125
  4. PREDONINE [Suspect]
     Route: 049
     Dates: start: 19991222
  5. PREDONINE [Suspect]
     Route: 049
     Dates: start: 19991222
  6. PREDONINE [Suspect]
     Indication: RHEUMATOID ARTHRITIS
     Route: 049
     Dates: start: 19991222
  7. RHEUMATREX [Suspect]
     Route: 065
     Dates: start: 19991222, end: 20040127
  8. RHEUMATREX [Suspect]
     Route: 065
     Dates: start: 19991222, end: 20040127
  9. RHEUMATREX [Suspect]
     Route: 065
     Dates: start: 19991222, end: 20040127
  10. RHEUMATREX [Suspect]
     Route: 065
     Dates: start: 19991222, end: 20040127
  11. RHEUMATREX [Suspect]
     Route: 065
     Dates: start: 19991222, end: 20040127
  12. RHEUMATREX [Suspect]
     Route: 065
     Dates: start: 19991222, end: 20040127
  13. RHEUMATREX [Suspect]
     Route: 065
     Dates: start: 19991222, end: 20040127
  14. RHEUMATREX [Suspect]
     Route: 065
     Dates: start: 19991222, end: 20040127
  15. RHEUMATREX [Suspect]
     Route: 065
     Dates: start: 19991222, end: 20040127
  16. RHEUMATREX [Suspect]
     Route: 065
     Dates: start: 19991222, end: 20040127
  17. RHEUMATREX [Suspect]
     Route: 065
     Dates: start: 19991222, end: 20040127
  18. RHEUMATREX [Suspect]
     Route: 065
     Dates: start: 19991222, end: 20040127
  19. RHEUMATREX [Suspect]
     Indication: DRUG USE FOR UNKNOWN INDICATION
     Route: 065
     Dates: start: 19991222, end: 20040127
  20. PEON [Concomitant]
     Route: 049
     Dates: start: 20001102, end: 20040128
  21. FOLIAMIN [Concomitant]
     Route: 049
     Dates: start: 20030717, end: 20040128
  22. ZEPOLAS [Concomitant]
     Route: 065
     Dates: start: 20020905, end: 20040128
  23. GASTER [Concomitant]
     Route: 049

REACTIONS (11)
  - BACTERIAL SEPSIS [None]
  - DISSEMINATED TUBERCULOSIS [None]
  - DRUG INEFFECTIVE [None]
  - DRUG INTERACTION [None]
  - HEPATIC STEATOSIS [None]
  - HEPATITIS B VIRUS [None]
  - HEPATOTOXICITY [None]
  - IMMUNOSUPPRESSION [None]
  - LIVER ABSCESS [None]
  - OPPORTUNISTIC INFECTION [None]
  - PRURITUS [None]
